FAERS Safety Report 9707268 (Version 2)
Quarter: 2014Q1

REPORT INFORMATION
  Report Type: Spontaneous
  Country: IT (occurrence: IT)
  Receive Date: 20131125
  Receipt Date: 20140127
  Transmission Date: 20141002
  Serious: Yes (Hospitalization)
  Sender: FDA-Public Use
  Company Number: IT-MYLANLABS-2013S1025760

PATIENT
  Age: 94 Year
  Sex: Female

DRUGS (3)
  1. TRIAZOLAM [Suspect]
     Route: 048
     Dates: start: 20130918, end: 20130918
  2. ISOPTIN [Concomitant]
     Indication: SUPRAVENTRICULAR TACHYCARDIA
     Route: 048
  3. TAVOR [Concomitant]
     Indication: PRODUCT USED FOR UNKNOWN INDICATION
     Route: 048

REACTIONS (4)
  - Overdose [Recovered/Resolved]
  - Drug abuse [Recovered/Resolved]
  - Intentional self-injury [Recovered/Resolved]
  - Sopor [Recovered/Resolved]
